FAERS Safety Report 9124231 (Version 1)
Quarter: 2013Q1

REPORT INFORMATION
  Report Type: Spontaneous
  Country: US (occurrence: US)
  Receive Date: 20130116
  Receipt Date: 20130116
  Transmission Date: 20140127
  Serious: No
  Sender: FDA-Public Use
  Company Number: US-PFIZER INC-2013016457

PATIENT
  Sex: Female

DRUGS (1)
  1. XELJANZ [Suspect]
     Dosage: UNK

REACTIONS (1)
  - Drug effect incomplete [Unknown]
